FAERS Safety Report 19015734 (Version 1)
Quarter: 2021Q1

REPORT INFORMATION
  Report Type: Other
  Country: FR (occurrence: FR)
  Receive Date: 20210317
  Receipt Date: 20210317
  Transmission Date: 20210420
  Serious: Yes (Other)
  Sender: FDA-Public Use
  Company Number: FR-CELLTRION INC.-2021FR003344

PATIENT

DRUGS (1)
  1. TRUXIMA [Suspect]
     Active Substance: RITUXIMAB-ABBS
     Indication: NON-HODGKIN^S LYMPHOMA
     Dosage: 750 MG, CYCLIC
     Route: 041
     Dates: start: 20200929, end: 20200929

REACTIONS (6)
  - Immediate post-injection reaction [Recovered/Resolved]
  - Pyrexia [Not Recovered/Not Resolved]
  - Hypothermia [Recovered/Resolved]
  - Hypertension [Recovered/Resolved]
  - Underdose [Unknown]
  - Tachycardia [Recovered/Resolved]

NARRATIVE: CASE EVENT DATE: 20200929
